FAERS Safety Report 16452024 (Version 1)
Quarter: 2019Q2

REPORT INFORMATION
  Report Type: Spontaneous
  Country: US (occurrence: US)
  Receive Date: 20190619
  Receipt Date: 20190619
  Transmission Date: 20190711
  Serious: No
  Sender: FDA-Public Use
  Company Number: US-ROCHE-2175842

PATIENT
  Sex: Female

DRUGS (7)
  1. CIMZIA [Concomitant]
     Active Substance: CERTOLIZUMAB PEGOL
  2. HUMIRA [Concomitant]
     Active Substance: ADALIMUMAB
  3. ACTEMRA [Suspect]
     Active Substance: TOCILIZUMAB
     Indication: RHEUMATOID ARTHRITIS
     Route: 042
  4. METHOTREXATE. [Concomitant]
     Active Substance: METHOTREXATE
     Route: 048
     Dates: start: 201701
  5. CIMZIA [Concomitant]
     Active Substance: CERTOLIZUMAB PEGOL
  6. ORENCIA [Concomitant]
     Active Substance: ABATACEPT
     Route: 065
     Dates: start: 201804, end: 201808
  7. XELJANZ [Concomitant]
     Active Substance: TOFACITINIB CITRATE

REACTIONS (2)
  - Drug ineffective [Unknown]
  - No adverse event [Unknown]
